FAERS Safety Report 9286124 (Version 1)
Quarter: 2013Q2

REPORT INFORMATION
  Report Type: Spontaneous
  Country: US (occurrence: None)
  Receive Date: 20130510
  Receipt Date: 20130510
  Transmission Date: 20140414
  Serious: Yes (Hospitalization, Other)
  Sender: FDA-Public Use
  Company Number: None

PATIENT
  Age: 58 Year
  Sex: Male

DRUGS (2)
  1. CEFTRIAXONE [Suspect]
     Indication: ENDOCARDITIS
     Dates: start: 20111107, end: 20111129
  2. VANCOMYCIN [Suspect]
     Indication: ENDOCARDITIS
     Dates: start: 20111107, end: 20111129

REACTIONS (2)
  - Hypotension [None]
  - Drug reaction with eosinophilia and systemic symptoms [None]
